FAERS Safety Report 7369113-9 (Version None)
Quarter: 2011Q1

REPORT INFORMATION
  Report Type: 
  Country: None (occurrence: None)
  Receive Date: 20110323
  Receipt Date: 20110321
  Transmission Date: 20110831
  Serious: Yes (Hospitalization)
  Sender: FDA-Public Use
  Company Number: JP-ABBOTT-11P-087-0710514-00

PATIENT
  Age: 71 Year
  Sex: Female

DRUGS (8)
  1. AZELNIDIPINE [Interacting]
     Indication: PRODUCT USED FOR UNKNOWN INDICATION
  2. TRICHLORMETHIAZIDE [Interacting]
     Indication: PRODUCT USED FOR UNKNOWN INDICATION
  3. PROPAFENONE [Interacting]
     Indication: PRODUCT USED FOR UNKNOWN INDICATION
  4. OLMESARTAN MEDOXOMIL [Interacting]
     Indication: PRODUCT USED FOR UNKNOWN INDICATION
  5. ATENOLOL [Interacting]
     Indication: PRODUCT USED FOR UNKNOWN INDICATION
  6. COLD REMEDY [Interacting]
     Indication: NASOPHARYNGITIS
  7. CLARITHROMYCIN [Suspect]
     Indication: NASOPHARYNGITIS
     Dates: start: 20100824
  8. PILSICAINIDE [Interacting]
     Indication: PRODUCT USED FOR UNKNOWN INDICATION

REACTIONS (3)
  - BRADYCARDIA [None]
  - DRUG INTERACTION [None]
  - CARDIAC ARREST [None]
